FAERS Safety Report 8533225-4 (Version None)
Quarter: 2012Q3

REPORT INFORMATION
  Report Type: 
  Country: None (occurrence: None)
  Receive Date: 20120724
  Receipt Date: 20120625
  Transmission Date: 20120928
  Serious: No
  Sender: FDA-Public Use
  Company Number: US-009507513-2012SP032476

PATIENT

DRUGS (5)
  1. KLONOPIN [Concomitant]
     Indication: PRODUCT USED FOR UNKNOWN INDICATION
  2. PEG-INTRON [Suspect]
     Dosage: 150 MICROGRAM, QW
     Dates: start: 20120518
  3. ADDERALL TABLETS [Concomitant]
  4. RIBASPHERE [Suspect]
     Indication: HEPATITIS C
  5. ANTIVIRAL (UNSPECIFIED) [Concomitant]

REACTIONS (3)
  - VOMITING [None]
  - DECREASED APPETITE [None]
  - DRUG DOSE OMISSION [None]
